FAERS Safety Report 8368089-5 (Version None)
Quarter: 2012Q2

REPORT INFORMATION
  Report Type: 
  Country: None (occurrence: None)
  Receive Date: 20120516
  Receipt Date: 20110919
  Transmission Date: 20120825
  Serious: Yes (Death, Hospitalization, Other)
  Sender: FDA-Public Use
  Company Number: AUR-APL-2011-05138

PATIENT
  Sex: Male

DRUGS (11)
  1. VANCOMYCIN [Suspect]
     Indication: PRODUCT USED FOR UNKNOWN INDICATION
  2. CLINDAMYCIN [Suspect]
     Indication: PRODUCT USED FOR UNKNOWN INDICATION
  3. DEXAMETHASONE [Suspect]
     Indication: TOXIC EPIDERMAL NECROLYSIS
     Dosage: (0.4 MG/KG)
  4. CIPROFLOXACIN [Suspect]
     Indication: PRODUCT USED FOR UNKNOWN INDICATION
  5. FLUCONAZOLE [Suspect]
     Indication: PRODUCT USED FOR UNKNOWN INDICATION
  6. AMIKACIN [Suspect]
     Indication: PRODUCT USED FOR UNKNOWN INDICATION
  7. TEICOPLAININ (TICOPLANIN) [Suspect]
     Indication: PRODUCT USED FOR UNKNOWN INDICATION
  8. OXACILLIN [Suspect]
     Indication: PRODUCT USED FOR UNKNOWN INDICATION
  9. PENICILLIN CRYSTALLINE (BENZYLPENICILLIN SODIUM) [Suspect]
     Indication: PRODUCT USED FOR UNKNOWN INDICATION
  10. METRONIDAZOLE [Suspect]
     Indication: PRODUCT USED FOR UNKNOWN INDICATION
  11. GENTAMICIN [Suspect]
     Indication: PRODUCT USED FOR UNKNOWN INDICATION

REACTIONS (11)
  - EXTREMITY NECROSIS [None]
  - KLEBSIELLA SEPSIS [None]
  - THROMBOCYTOPENIA [None]
  - VASCULITIS [None]
  - SEPTIC SHOCK [None]
  - TOXIC EPIDERMAL NECROLYSIS [None]
  - LEUKOPENIA [None]
  - NECROTISING COLITIS [None]
  - DEATH NEONATAL [None]
  - PYREXIA [None]
  - STAPHYLOCOCCAL SEPSIS [None]
